FAERS Safety Report 7328845-9 (Version None)
Quarter: 2011Q1

REPORT INFORMATION
  Report Type: 
  Country: None (occurrence: None)
  Receive Date: 20110303
  Receipt Date: 20110224
  Transmission Date: 20110831
  Serious: Yes (Hospitalization)
  Sender: FDA-Public Use
  Company Number: US-AMGEN-USACT2011002567

PATIENT
  Age: 56 Year
  Sex: Female
  Weight: 97.6 kg

DRUGS (3)
  1. PANITUMUMAB [Suspect]
     Indication: BREAST CANCER METASTATIC
     Dosage: 6 MG/KG, Q2WK
     Dates: start: 20101111, end: 20110112
  2. TAXOL [Concomitant]
     Indication: BREAST CANCER METASTATIC
     Dosage: 80 MG/M2, QWK
     Route: 042
     Dates: start: 20101111
  3. CARBOPLATIN [Concomitant]
     Indication: BREAST CANCER METASTATIC
     Dosage: UNK UNK, QWK
     Route: 042
     Dates: start: 20101111

REACTIONS (7)
  - HYPOKALAEMIA [None]
  - VOMITING [None]
  - HYPOMAGNESAEMIA [None]
  - HYPOCALCAEMIA [None]
  - DIARRHOEA [None]
  - NAUSEA [None]
  - PARAESTHESIA [None]
